FAERS Safety Report 4835687-2 (Version None)
Quarter: 2005Q4

REPORT INFORMATION
  Report Type: 
  Country: None (occurrence: None)
  Receive Date: 20051123
  Receipt Date: 20050425
  Transmission Date: 20060501
  Serious: No
  Sender: FDA-Public Use
  Company Number: US-BRISTOL-MYERS SQUIBB COMPANY-12945689

PATIENT
  Age: 42 Year
  Sex: Female
  Weight: 145 kg

DRUGS (1)
  1. PROLIXIN [Suspect]

REACTIONS (2)
  - BURNING SENSATION [None]
  - HALLUCINATION [None]
